FAERS Safety Report 12240504 (Version 1)
Quarter: 2016Q2

REPORT INFORMATION
  Report Type: Other
  Country: US (occurrence: US)
  Receive Date: 20160405
  Receipt Date: 20160405
  Transmission Date: 20160815
  Serious: Yes (Hospitalization)
  Sender: FDA-Public Use
  Company Number: US-NAPPMUNDI-DEU-2016-0017836

PATIENT
  Age: 82 Year
  Sex: Female

DRUGS (7)
  1. BUPIVACAINE. [Concomitant]
     Active Substance: BUPIVACAINE
     Indication: ANAESTHESIA
     Dosage: 0.5%
     Route: 008
  2. BUPIVACAINE. [Concomitant]
     Active Substance: BUPIVACAINE
     Dosage: 12.5 MG OF 0.5%
     Route: 037
  3. PROPOFOL. [Concomitant]
     Active Substance: PROPOFOL
     Indication: SEDATION
     Dosage: UNK
  4. HYDROMORPHONE HCL (SIMILAR TO 19-892) [Suspect]
     Active Substance: HYDROMORPHONE HYDROCHLORIDE
     Indication: PAIN
     Dosage: UNK
     Route: 042
  5. HYDROMORPHONE HCL (SIMILAR TO 19-892) [Suspect]
     Active Substance: HYDROMORPHONE HYDROCHLORIDE
     Dosage: 0.5 MG, UNK
     Route: 008
  6. MIDAZOLAM [Concomitant]
     Active Substance: MIDAZOLAM\MIDAZOLAM HYDROCHLORIDE
     Dosage: 1 MG, UNK
  7. ONDANSETRON [Concomitant]
     Active Substance: ONDANSETRON
     Dosage: UNK
     Route: 008

REACTIONS (1)
  - Oscillopsia [Recovered/Resolved]
